FAERS Safety Report 5962610-X (Version None)
Quarter: 2008Q4

REPORT INFORMATION
  Report Type: 
  Country: None (occurrence: None)
  Receive Date: 20081121
  Receipt Date: 20081112
  Transmission Date: 20090506
  Serious: Yes (Other)
  Sender: FDA-Public Use
  Company Number: SE-PFIZER INC-2008096701

PATIENT
  Sex: Male
  Weight: 75 kg

DRUGS (10)
  1. GENOTROPIN [Suspect]
     Indication: HYPOPITUITARISM
     Dosage: DAILY DOSE:.4MG
     Route: 058
     Dates: start: 20011005
  2. WARFARIN SODIUM [Concomitant]
     Indication: ATRIAL FIBRILLATION
     Dosage: DAILY DOSE:2.5MG
     Dates: start: 20081005
  3. SIMVASTATIN [Concomitant]
     Indication: HYPERLIPIDAEMIA
     Dosage: DAILY DOSE:40MG
     Dates: start: 20061211
  4. SELOCOMP ZOC [Concomitant]
     Indication: CARDIAC DISORDER
     Dosage: DAILY DOSE:50MG
     Dates: start: 20020402
  5. OMEPRAZOLE [Concomitant]
     Indication: DYSPEPSIA
     Dosage: DAILY DOSE:100MG
     Dates: start: 20010914
  6. NORVASC [Concomitant]
     Indication: HYPERTENSION
     Dosage: DAILY DOSE:10MG
     Dates: start: 20020610
  7. HYDROCORTISONE [Concomitant]
     Indication: BLOOD CORTICOTROPHIN DECREASED
     Dosage: DAILY DOSE:60MG
     Dates: start: 20040916
  8. NITROGLYCERIN [Concomitant]
     Indication: ANGINA PECTORIS
     Dates: start: 19991213
  9. TESTOSTERONE [Concomitant]
     Indication: BLOOD FOLLICLE STIMULATING HORMONE DECREASED
     Dates: start: 20060314
  10. TESTOSTERONE [Concomitant]
     Indication: BLOOD LUTEINISING HORMONE DECREASED

REACTIONS (1)
  - LUNG NEOPLASM MALIGNANT [None]
